FAERS Safety Report 16647951 (Version 1)
Quarter: 2019Q3

REPORT INFORMATION
  Report Type: Spontaneous
  Country: US (occurrence: US)
  Receive Date: 20190729
  Receipt Date: 20190729
  Transmission Date: 20191004
  Serious: No
  Sender: FDA-Public Use
  Company Number: None

PATIENT
  Age: 63 Year
  Sex: Male

DRUGS (2)
  1. REPATHA [Suspect]
     Active Substance: EVOLOCUMAB
     Indication: HYPERTRIGLYCERIDAEMIA
     Route: 058
     Dates: start: 20190416, end: 20190725
  2. REPATHA [Suspect]
     Active Substance: EVOLOCUMAB
     Dates: start: 20190416

REACTIONS (2)
  - Chest pain [None]
  - Myalgia [None]

NARRATIVE: CASE EVENT DATE: 20190725
